FAERS Safety Report 7710361-3 (Version None)
Quarter: 2011Q3

REPORT INFORMATION
  Report Type: 
  Country: None (occurrence: None)
  Receive Date: 20110825
  Receipt Date: 20110816
  Transmission Date: 20111222
  Serious: Yes (Other)
  Sender: FDA-Public Use
  Company Number: FR-ASTRAZENECA-2011SE20449

PATIENT
  Age: 10907 Day
  Sex: Female

DRUGS (4)
  1. SPASFON [Concomitant]
     Indication: UTERINE CONTRACTIONS ABNORMAL
     Route: 048
  2. OMEPRAZOLE [Suspect]
     Indication: ABDOMINAL PAIN UPPER
     Route: 048
     Dates: start: 20110326, end: 20110502
  3. OMEPRAZOLE [Suspect]
     Indication: GASTROOESOPHAGEAL REFLUX DISEASE
     Route: 048
     Dates: start: 20110326, end: 20110502
  4. TRIPHASIL-21 [Concomitant]
     Indication: CHEMICAL CONTRACEPTION

REACTIONS (5)
  - MATERNAL EXPOSURE DURING PREGNANCY [None]
  - ANTEPARTUM HAEMORRHAGE [None]
  - ACTIVATED PARTIAL THROMBOPLASTIN TIME PROLONGED [None]
  - PLATELET COUNT DECREASED [None]
  - BLOOD PRESSURE DECREASED [None]
